FAERS Safety Report 10451739 (Version 2)
Quarter: 2014Q4

REPORT INFORMATION
  Report Type: Spontaneous
  Country: CZ (occurrence: CZ)
  Receive Date: 20140915
  Receipt Date: 20141016
  Transmission Date: 20150528
  Serious: Yes (Other)
  Sender: FDA-Public Use
  Company Number: CZ-AMGEN-CZESP2014069205

PATIENT
  Age: 30 Year
  Sex: Female

DRUGS (8)
  1. METHYLPREDNISOLONE. [Concomitant]
     Active Substance: METHYLPREDNISOLONE
     Indication: HAEMOLYTIC URAEMIC SYNDROME
     Dosage: LOW DOSE
     Dates: start: 2006
  2. ALENDRONATE [Concomitant]
     Active Substance: ALENDRONATE SODIUM
     Dosage: UNK
     Dates: start: 2008, end: 2011
  3. CALCIUM [Concomitant]
     Active Substance: CALCIUM
     Route: 048
  4. VITAMIN D                          /00107901/ [Concomitant]
     Active Substance: ERGOCALCIFEROL
     Dosage: 300000 IU, Q3MO
  5. CALCITRIOL. [Concomitant]
     Active Substance: CALCITRIOL
     Dosage: UNK
     Dates: start: 2005, end: 2008
  6. PLASMA DESSICATED [Concomitant]
     Indication: HAEMOLYTIC URAEMIC SYNDROME
     Dosage: UNK
     Dates: start: 2006
  7. PROLIA [Suspect]
     Active Substance: DENOSUMAB
     Indication: OSTEOPOROSIS
     Dosage: 60 MG, Q6MO
     Route: 058
     Dates: start: 201108
  8. PARICALCITOL. [Concomitant]
     Active Substance: PARICALCITOL
     Indication: HYPERPARATHYROIDISM SECONDARY
     Dosage: 5-15 MCG, QWK
     Dates: start: 2008

REACTIONS (4)
  - Hypocalcaemia [Recovering/Resolving]
  - Vertebral wedging [Unknown]
  - Blood parathyroid hormone increased [Recovering/Resolving]
  - Spinal pain [Unknown]
